FAERS Safety Report 10176972 (Version 1)
Quarter: 2014Q2

REPORT INFORMATION
  Report Type: Spontaneous
  Country: GB (occurrence: GB)
  Receive Date: 20140516
  Receipt Date: 20140516
  Transmission Date: 20141212
  Serious: Yes (Other)
  Sender: FDA-Public Use
  Company Number: GB-PFIZER INC-2014133258

PATIENT
  Age: 67 Year
  Sex: Male

DRUGS (2)
  1. FINASTERIDE [Suspect]
     Indication: PROSTATOMEGALY
     Dosage: UNK
  2. TRIMETHOPRIM [Interacting]
     Indication: URINARY TRACT INFECTION
     Dosage: 200 MG, 2X/DAY

REACTIONS (2)
  - Urinary retention [Recovered/Resolved]
  - Drug interaction [Unknown]
